FAERS Safety Report 6187652-3 (Version None)
Quarter: 2009Q2

REPORT INFORMATION
  Report Type: 
  Country: None (occurrence: None)
  Receive Date: 20090511
  Receipt Date: 20090430
  Transmission Date: 20091009
  Serious: No
  Sender: FDA-Public Use
  Company Number: SPI200900153

PATIENT
  Age: 54 Year
  Sex: Female

DRUGS (1)
  1. AMITIZA [Suspect]
     Dosage: ORAL
     Route: 048
     Dates: start: 20090430, end: 20090430

REACTIONS (1)
  - DYSPNOEA [None]
